FAERS Safety Report 9178817 (Version 2)
Quarter: 2013Q2

REPORT INFORMATION
  Report Type: Other
  Country: US (occurrence: US)
  Receive Date: 20130321
  Receipt Date: 20130604
  Transmission Date: 20140414
  Serious: Yes (Other)
  Sender: FDA-Public Use
  Company Number: US-BRISTOL-MYERS SQUIBB COMPANY-17476250

PATIENT
  Sex: 0

DRUGS (1)
  1. SUSTIVA [Suspect]
     Route: 064

REACTIONS (1)
  - Pachygyria [Unknown]
